FAERS Safety Report 15456610 (Version 1)
Quarter: 2018Q3

REPORT INFORMATION
  Report Type: Spontaneous
  Country: US (occurrence: US)
  Receive Date: 20180928
  Receipt Date: 20180928
  Transmission Date: 20181010
  Serious: Yes (Hospitalization)
  Sender: FDA-Public Use
  Company Number: None

PATIENT
  Age: 55 Year
  Sex: Male

DRUGS (10)
  1. DEXAMETH [Concomitant]
     Active Substance: DEXAMETHASONE
  2. TEMAZEPAM. [Concomitant]
     Active Substance: TEMAZEPAM
  3. TRAMADOL. [Concomitant]
     Active Substance: TRAMADOL
  4. CELEBREX [Concomitant]
     Active Substance: CELECOXIB
  5. PHOS [Concomitant]
  6. LOSARTAN POT [Concomitant]
     Active Substance: LOSARTAN POTASSIUM
  7. CARVEDILOL. [Concomitant]
     Active Substance: CARVEDILOL
  8. ASPIRIN. [Concomitant]
     Active Substance: ASPIRIN
  9. CAPECITABINE 500 MG TAB [Suspect]
     Active Substance: CAPECITABINE
     Indication: NEOPLASM MALIGNANT
     Route: 048
     Dates: start: 20180817
  10. FAMOTIDINE. [Concomitant]
     Active Substance: FAMOTIDINE

REACTIONS (1)
  - Hospitalisation [None]
